FAERS Safety Report 11085187 (Version 4)
Quarter: 2015Q3

REPORT INFORMATION
  Report Type: Spontaneous
  Country: US (occurrence: US)
  Receive Date: 20150503
  Receipt Date: 20150915
  Transmission Date: 20151125
  Serious: Yes (Life-Threatening, Hospitalization)
  Sender: FDA-Public Use
  Company Number: US-JNJFOC-20150416596

PATIENT
  Age: 62 Year
  Sex: Male

DRUGS (23)
  1. LASIX [Concomitant]
     Active Substance: FUROSEMIDE
     Route: 065
     Dates: start: 2003, end: 2013
  2. SLOW-MAG [Concomitant]
     Active Substance: MAGNESIUM CHLORIDE
     Route: 065
     Dates: start: 2011, end: 2013
  3. AMITRIPTYLINE [Concomitant]
     Active Substance: AMITRIPTYLINE
     Route: 065
  4. CRESTOR [Concomitant]
     Active Substance: ROSUVASTATIN CALCIUM
     Route: 065
     Dates: start: 2009, end: 2014
  5. PANTOPRAZOLE SODIUM. [Concomitant]
     Active Substance: PANTOPRAZOLE SODIUM
     Route: 065
     Dates: start: 2011, end: 2013
  6. ASPIRIN. [Suspect]
     Active Substance: ASPIRIN
     Indication: ANTICOAGULANT THERAPY
     Route: 065
  7. CALCIUM GLUCONATE. [Concomitant]
     Active Substance: CALCIUM GLUCONATE
     Route: 065
     Dates: start: 2011, end: 2014
  8. LYRICA [Concomitant]
     Active Substance: PREGABALIN
     Route: 065
     Dates: start: 2012, end: 2015
  9. KLOR-CON [Concomitant]
     Active Substance: POTASSIUM CHLORIDE
     Route: 065
     Dates: start: 2011, end: 2013
  10. ROCALTROL [Concomitant]
     Active Substance: CALCITRIOL
     Route: 065
     Dates: start: 2011
  11. NIASPAN [Concomitant]
     Active Substance: NIACIN
     Route: 065
     Dates: start: 2005, end: 2013
  12. PROTONIX [Concomitant]
     Active Substance: PANTOPRAZOLE SODIUM
     Route: 065
  13. SPIRONOLACTONE. [Concomitant]
     Active Substance: SPIRONOLACTONE
     Route: 065
     Dates: start: 2008, end: 2014
  14. TAMSULOSIN HCL [Concomitant]
     Active Substance: TAMSULOSIN
     Route: 065
     Dates: start: 2012, end: 2013
  15. SLOW-MAG [Concomitant]
     Active Substance: MAGNESIUM CHLORIDE
     Route: 065
  16. OXYCODONE AND ACETAMINOPHEN [Concomitant]
     Active Substance: ACETAMINOPHEN\OXYCODONE\OXYCODONE HYDROCHLORIDE
     Route: 065
     Dates: start: 2011, end: 2014
  17. METOPROLOL SUCCINATE. [Concomitant]
     Active Substance: METOPROLOL SUCCINATE
     Route: 065
     Dates: start: 2002, end: 2013
  18. LOPRESSOR [Concomitant]
     Active Substance: METOPROLOL TARTRATE
     Route: 065
  19. XARELTO [Suspect]
     Active Substance: RIVAROXABAN
     Indication: THROMBOSIS PROPHYLAXIS
     Route: 048
     Dates: start: 20130401, end: 20130403
  20. IMODIUM [Concomitant]
     Active Substance: LOPERAMIDE HYDROCHLORIDE
     Route: 065
  21. LISINOPRIL. [Concomitant]
     Active Substance: LISINOPRIL
     Route: 065
     Dates: start: 2003, end: 2014
  22. GLIMEPIRIDE. [Concomitant]
     Active Substance: GLIMEPIRIDE
     Route: 065
     Dates: start: 2011, end: 2014
  23. AMIODARONE [Concomitant]
     Active Substance: AMIODARONE
     Indication: HEART RATE
     Route: 065

REACTIONS (3)
  - Gastrointestinal haemorrhage [Unknown]
  - Coma [Unknown]
  - Haemorrhagic stroke [Unknown]

NARRATIVE: CASE EVENT DATE: 20130403
